FAERS Safety Report 4721423-7 (Version None)
Quarter: 2005Q3

REPORT INFORMATION
  Report Type: 
  Country: None (occurrence: None)
  Receive Date: 20050721
  Receipt Date: 20040824
  Transmission Date: 20060218
  Serious: No
  Sender: FDA-Public Use
  Company Number: US-BRISTOL-MYERS SQUIBB COMPANY-12683751

PATIENT
  Age: 81 Year
  Sex: Female
  Weight: 58 kg

DRUGS (5)
  1. COUMADIN [Suspect]
  2. CALAN [Concomitant]
  3. ULTRAM [Concomitant]
  4. ATENDOL [Concomitant]
  5. PREVPAC [Concomitant]
     Indication: GASTRITIS
     Route: 048
     Dates: start: 20040812, end: 20040821

REACTIONS (1)
  - PROTHROMBIN LEVEL DECREASED [None]
